FAERS Safety Report 18585403 (Version 1)
Quarter: 2020Q4

REPORT INFORMATION
  Report Type: Spontaneous
  Country: US (occurrence: US)
  Receive Date: 20201205
  Receipt Date: 20201205
  Transmission Date: 20210114
  Serious: No
  Sender: FDA-Public Use
  Company Number: None

PATIENT
  Age: 32 Year
  Sex: Female

DRUGS (1)
  1. LOSARTAN POTASSIUM TABLETS [Suspect]
     Active Substance: LOSARTAN POTASSIUM
     Indication: NEPHROPATHY

REACTIONS (4)
  - Headache [None]
  - Palpitations [None]
  - Product substitution issue [None]
  - Adverse drug reaction [None]

NARRATIVE: CASE EVENT DATE: 20200701
